FAERS Safety Report 5996582-9 (Version None)
Quarter: 2008Q4

REPORT INFORMATION
  Report Type: 
  Country: None (occurrence: None)
  Receive Date: 20081212
  Receipt Date: 20081020
  Transmission Date: 20090506
  Serious: No
  Sender: FDA-Public Use
  Company Number: US-ABBOTT-08P-163-0482908-00

PATIENT
  Age: 60 Year
  Sex: Female

DRUGS (2)
  1. HUMIRA [Suspect]
     Indication: RASH
     Route: 058
     Dates: start: 20080714, end: 20080728
  2. TOPICAL STEROID [Concomitant]
     Indication: RASH

REACTIONS (1)
  - RASH [None]
